FAERS Safety Report 9119307 (Version 1)
Quarter: 2013Q1

REPORT INFORMATION
  Report Type: Spontaneous
  Country: US (occurrence: None)
  Receive Date: 20130130
  Receipt Date: 20130130
  Transmission Date: 20140127
  Serious: Yes (Other)
  Sender: FDA-Public Use
  Company Number: 2013P1000683

PATIENT
  Age: 23 Year
  Sex: Female
  Weight: 83.01 kg

DRUGS (1)
  1. MYORISAN [Suspect]
     Indication: ACNE
     Route: 048
     Dates: start: 20121113, end: 20130107

REACTIONS (3)
  - Mood swings [None]
  - Depression [None]
  - Nightmare [None]
